FAERS Safety Report 7386602-1 (Version None)
Quarter: 2011Q1

REPORT INFORMATION
  Report Type: 
  Country: None (occurrence: None)
  Receive Date: 20110331
  Receipt Date: 20110324
  Transmission Date: 20110831
  Serious: Yes (Hospitalization)
  Sender: FDA-Public Use
  Company Number: FR-ROCHE-767841

PATIENT
  Sex: Male

DRUGS (4)
  1. ZYPREXA [Suspect]
     Indication: BIPOLAR DISORDER
     Route: 048
     Dates: end: 20101104
  2. VALIUM [Suspect]
     Dosage: DOSE: 10
     Route: 048
     Dates: end: 20101104
  3. TERALITHE [Suspect]
     Indication: BIPOLAR DISORDER
     Route: 048
     Dates: end: 20101104
  4. ANAFRANIL [Suspect]
     Indication: BIPOLAR DISORDER
     Route: 048
     Dates: end: 20101104

REACTIONS (1)
  - HEPATITIS ACUTE [None]
